FAERS Safety Report 25211266 (Version 1)
Quarter: 2025Q2

REPORT INFORMATION
  Report Type: Spontaneous
  Country: US (occurrence: US)
  Receive Date: 20250417
  Receipt Date: 20250417
  Transmission Date: 20250716
  Serious: No
  Sender: BRISTOL-MYERS SQUIBB COMPANY
  Company Number: US-BRISTOL-MYERS SQUIBB COMPANY-2025-055226

PATIENT
  Age: 47 Year
  Sex: Male

DRUGS (2)
  1. COBENFY [Suspect]
     Active Substance: TROSPIUM CHLORIDE\XANOMELINE
     Indication: Schizophrenia
     Dosage: STRENGTH: 125 MG/30 MG
     Route: 048
     Dates: start: 2025
  2. CLOZARIL [Concomitant]
     Active Substance: CLOZAPINE
     Indication: Product used for unknown indication

REACTIONS (3)
  - Product dose omission issue [Unknown]
  - Social avoidant behaviour [Recovered/Resolved]
  - Aggression [Recovered/Resolved]

NARRATIVE: CASE EVENT DATE: 20250101
